FAERS Safety Report 11506404 (Version 1)
Quarter: 2015Q3

REPORT INFORMATION
  Report Type: Spontaneous
  Country: US (occurrence: US)
  Receive Date: 20150915
  Receipt Date: 20150915
  Transmission Date: 20151125
  Serious: No
  Sender: FDA-Public Use
  Company Number: US-ROCHE-735543

PATIENT
  Age: 56 Year
  Sex: Female

DRUGS (2)
  1. RIBAVIRIN. [Suspect]
     Active Substance: RIBAVIRIN
     Indication: HEPATITIS C
     Dosage: COMPLETED 24 WEEK
     Route: 065
     Dates: start: 20101013, end: 20110323
  2. PEGASYS [Suspect]
     Active Substance: PEGINTERFERON ALFA-2A
     Indication: HEPATITIS C
     Dosage: FORM: PRE-FILLED SYRINGE, COMPLETED 24 WEEK
     Route: 065
     Dates: start: 20101013, end: 20110323

REACTIONS (7)
  - Headache [Recovering/Resolving]
  - Dry eye [Not Recovered/Not Resolved]
  - Dysgeusia [Not Recovered/Not Resolved]
  - Musculoskeletal pain [Recovering/Resolving]
  - Pollakiuria [Not Recovered/Not Resolved]
  - Vaginitis bacterial [Unknown]
  - Bladder disorder [Unknown]

NARRATIVE: CASE EVENT DATE: 20101013
